FAERS Safety Report 22236185 (Version 1)
Quarter: 2023Q2

REPORT INFORMATION
  Report Type: Spontaneous
  Country: US (occurrence: None)
  Receive Date: 20230420
  Receipt Date: 20230420
  Transmission Date: 20230721
  Serious: Yes (Death)
  Sender: FDA-Public Use
  Company Number: US-ROCHE-3334954

PATIENT
  Age: 74 Year
  Sex: Male

DRUGS (1)
  1. ESBRIET [Suspect]
     Active Substance: PIRFENIDONE
     Indication: Idiopathic pulmonary fibrosis
     Dosage: ON 28/12/2022, LAST DISPENSED
     Route: 048
     Dates: start: 202104

REACTIONS (1)
  - Death [Fatal]

NARRATIVE: CASE EVENT DATE: 20230124
